FAERS Safety Report 9242628 (Version 2)
Quarter: 2013Q3

REPORT INFORMATION
  Report Type: Spontaneous
  Country: GB (occurrence: GB)
  Receive Date: 20130419
  Receipt Date: 20130823
  Transmission Date: 20140515
  Serious: Yes (Other)
  Sender: FDA-Public Use
  Company Number: GB-VERTEX PHARMACEUTICALS INC.-2013-005188

PATIENT
  Sex: Male

DRUGS (1)
  1. INCIVO [Suspect]
     Indication: HEPATITIS C
     Dosage: TABLET, TID, TABLET
     Route: 048

REACTIONS (1)
  - Rash [Unknown]
